FAERS Safety Report 5271915-X (Version None)
Quarter: 2007Q1

REPORT INFORMATION
  Report Type: 
  Country: None (occurrence: None)
  Receive Date: 20070319
  Receipt Date: 20070312
  Transmission Date: 20070707
  Serious: Yes (Death)
  Sender: FDA-Public Use
  Company Number: 163-21880-07030348

PATIENT
  Age: 66 Year
  Sex: Male

DRUGS (2)
  1. REVLIMID [Suspect]
     Indication: MULTIPLE MYELOMA
     Dosage: 25 MG, 1 IN 1 D, ORAL
     Route: 048
     Dates: start: 20061011, end: 20070201
  2. REVLIMID [Suspect]

REACTIONS (2)
  - DISEASE PROGRESSION [None]
  - MYOCARDIAL INFARCTION [None]
